FAERS Safety Report 16886525 (Version 1)
Quarter: 2019Q4

REPORT INFORMATION
  Report Type: Spontaneous
  Country: None (occurrence: US)
  Receive Date: 20191004
  Receipt Date: 20191004
  Transmission Date: 20200122
  Serious: No
  Sender: FDA-Public Use
  Company Number: US-IPSEN BIOPHARMACEUTICALS, INC.-2019-17999

PATIENT
  Age: 11 Year
  Sex: Female

DRUGS (2)
  1. INCRELEX [Suspect]
     Active Substance: MECASERMIN
     Indication: CYTOGENETIC ABNORMALITY
     Route: 058
     Dates: start: 20190717
  2. INCRELEX [Suspect]
     Active Substance: MECASERMIN
     Indication: OFF LABEL USE

REACTIONS (2)
  - Fatigue [Unknown]
  - Off label use [Unknown]

NARRATIVE: CASE EVENT DATE: 20190717
